FAERS Safety Report 7409535-0 (Version None)
Quarter: 2011Q2

REPORT INFORMATION
  Report Type: 
  Country: None (occurrence: None)
  Receive Date: 20110407
  Receipt Date: 20110407
  Transmission Date: 20111010
  Serious: No
  Sender: FDA-Public Use
  Company Number: None

PATIENT
  Age: 63 Year
  Sex: Female
  Weight: 65.7716 kg

DRUGS (1)
  1. LEVAQUIN [Suspect]
     Indication: SINUSITIS BACTERIAL
     Dosage: 500 DAILY PO
     Route: 048
     Dates: start: 20110402, end: 20110403

REACTIONS (6)
  - ERYTHEMA [None]
  - PALPITATIONS [None]
  - HEART RATE IRREGULAR [None]
  - FEELING JITTERY [None]
  - INSOMNIA [None]
  - MENTAL DISORDER [None]
